FAERS Safety Report 12763550 (Version 2)
Quarter: 2016Q4

REPORT INFORMATION
  Report Type: Spontaneous
  Country: BR (occurrence: BR)
  Receive Date: 20160920
  Receipt Date: 20161108
  Transmission Date: 20170207
  Serious: Yes (Death, Hospitalization, Other)
  Sender: FDA-Public Use
  Company Number: BR-BAYER-2016-177889

PATIENT
  Age: 61 Year
  Sex: Male

DRUGS (1)
  1. NEXAVAR [Suspect]
     Active Substance: SORAFENIB
     Indication: HEPATIC NEOPLASM
     Dosage: 400 MG, QD
     Route: 048
     Dates: start: 20160612, end: 20160902

REACTIONS (5)
  - Ascites [None]
  - Encephalopathy [None]
  - Hepatic cancer [Fatal]
  - Coma [Fatal]
  - Lung infiltration [Fatal]
